FAERS Safety Report 6863657-1 (Version None)
Quarter: 2010Q3

REPORT INFORMATION
  Report Type: 
  Country: None (occurrence: None)
  Receive Date: 20100721
  Receipt Date: 20080310
  Transmission Date: 20110219
  Serious: No
  Sender: FDA-Public Use
  Company Number: US-PFIZER INC-2008022772

PATIENT
  Sex: Female
  Weight: 88.6 kg

DRUGS (5)
  1. CHANTIX [Suspect]
     Indication: SMOKING CESSATION THERAPY
     Dates: start: 20080224
  2. DRUG, UNSPECIFIED [Concomitant]
  3. LITHIUM CARBONATE [Concomitant]
     Indication: BIPOLAR DISORDER
  4. DEPAKOTE [Concomitant]
     Indication: BIPOLAR DISORDER
  5. FLUOXETINE [Concomitant]
     Indication: BIPOLAR DISORDER

REACTIONS (2)
  - ABNORMAL DREAMS [None]
  - FATIGUE [None]
